FAERS Safety Report 6138982-2 (Version None)
Quarter: 2009Q1

REPORT INFORMATION
  Report Type: 
  Country: None (occurrence: None)
  Receive Date: 20090325
  Receipt Date: 20090320
  Transmission Date: 20090719
  Serious: Yes (Hospitalization)
  Sender: FDA-Public Use
  Company Number: 200914806

PATIENT
  Age: 4 Month
  Sex: Male

DRUGS (3)
  1. CARIMUNE [Suspect]
     Indication: HYPOGAMMAGLOBULINAEMIA
     Dosage: 545 MG/KG Q1MO IV
     Route: 042
     Dates: start: 20070327, end: 20070619
  2. GRANULOCYTE COLONY STIMULATING FACTOR (G-CSF) [Concomitant]
  3. ANTIBIOTICS [Concomitant]

REACTIONS (6)
  - DRUG INEFFECTIVE [None]
  - IRRITABILITY [None]
  - NEUTROPENIA [None]
  - OTITIS MEDIA [None]
  - PNEUMONIA [None]
  - PYREXIA [None]
